FAERS Safety Report 21541866 (Version 1)
Quarter: 2022Q4

REPORT INFORMATION
  Report Type: Spontaneous
  Country: CN (occurrence: CN)
  Receive Date: 20221102
  Receipt Date: 20221102
  Transmission Date: 20230113
  Serious: Yes (Other)
  Sender: FDA-Public Use
  Company Number: None

PATIENT
  Age: 30 Year
  Sex: Female
  Weight: 60 kg

DRUGS (6)
  1. CYCLOPHOSPHAMIDE [Suspect]
     Active Substance: CYCLOPHOSPHAMIDE
     Indication: Breast cancer female
     Dosage: CHEMOTHERAPY FOR SECOND TIME- 980 MG (DILUTED WITH 50 ML OF NS), QD, DOSAGE FORM- POWDER INJECTION
     Route: 041
     Dates: start: 20220905, end: 20220905
  2. CYCLOPHOSPHAMIDE [Suspect]
     Active Substance: CYCLOPHOSPHAMIDE
     Indication: Chemotherapy
  3. SODIUM CHLORIDE [Suspect]
     Active Substance: SODIUM CHLORIDE
     Indication: Medication dilution
     Dosage: CHEMOTHERAPY FOR SECOND TIME- 50 ML (USED TO DILUTE 980 MG CYCLOPHOSPHAMIDE), QD
     Route: 041
     Dates: start: 20220905, end: 20220905
  4. SODIUM CHLORIDE [Suspect]
     Active Substance: SODIUM CHLORIDE
     Dosage: CHEMOTHERAPY FOR SECOND TIME- 100 ML (USED TO DILUTE 140 MG PHARMORUBICIN), QD
     Route: 041
     Dates: start: 20220905, end: 20220905
  5. EPIRUBICIN [Suspect]
     Active Substance: EPIRUBICIN
     Indication: Breast cancer female
     Dosage: CHEMOTHERAPY FOR SECOND TIME- 140 MG (DILUTED WITH 100 ML OF NS), QD
     Route: 041
     Dates: start: 20220905, end: 20220905
  6. EPIRUBICIN [Suspect]
     Active Substance: EPIRUBICIN
     Indication: Chemotherapy

REACTIONS (2)
  - White blood cell count decreased [Recovered/Resolved]
  - Agranulocytosis [Recovered/Resolved]

NARRATIVE: CASE EVENT DATE: 20220916
